FAERS Safety Report 7074552-X (Version None)
Quarter: 2010Q4

REPORT INFORMATION
  Report Type: 
  Country: None (occurrence: None)
  Receive Date: 20101029
  Receipt Date: 20101020
  Transmission Date: 20110411
  Serious: Yes (Other)
  Sender: FDA-Public Use
  Company Number: US-PURDUE-USA-2010-0051018

PATIENT
  Age: 61 Year
  Sex: Male

DRUGS (2)
  1. OXYCONTIN [Suspect]
     Indication: BACK PAIN
     Dosage: 80 MG, BID
     Route: 048
     Dates: start: 20100901
  2. OXYCONTIN [Suspect]
     Indication: NECK PAIN

REACTIONS (7)
  - DRUG EFFECT DELAYED [None]
  - FEELING ABNORMAL [None]
  - HEADACHE [None]
  - INADEQUATE ANALGESIA [None]
  - NAUSEA [None]
  - PAIN [None]
  - SUICIDAL IDEATION [None]
